FAERS Safety Report 7709624-7 (Version None)
Quarter: 2011Q3

REPORT INFORMATION
  Report Type: 
  Country: None (occurrence: None)
  Receive Date: 20110825
  Receipt Date: 20110812
  Transmission Date: 20111222
  Serious: Yes (Hospitalization)
  Sender: FDA-Public Use
  Company Number: US-GLAXOSMITHKLINE-A0875983A

PATIENT
  Age: 51 Year
  Sex: Male

DRUGS (1)
  1. AVANDIA [Suspect]
     Indication: DIABETES MELLITUS
     Route: 048

REACTIONS (10)
  - CHEST PAIN [None]
  - MITRAL VALVE INCOMPETENCE [None]
  - TRICUSPID VALVE INCOMPETENCE [None]
  - PAIN [None]
  - MULTIPLE INJURIES [None]
  - DYSPNOEA [None]
  - CARDIOMEGALY [None]
  - MYOCARDIAL INFARCTION [None]
  - SURGERY [None]
  - ECONOMIC PROBLEM [None]
